FAERS Safety Report 17781025 (Version 1)
Quarter: 2020Q2

REPORT INFORMATION
  Report Type: Spontaneous
  Country: US (occurrence: US)
  Receive Date: 20200513
  Receipt Date: 20200513
  Transmission Date: 20200714
  Serious: No
  Sender: FDA-Public Use
  Company Number: None

PATIENT
  Age: 41 Year
  Sex: Male
  Weight: 155.8 kg

DRUGS (7)
  1. HYDRALAZINE [Concomitant]
     Active Substance: HYDRALAZINE HYDROCHLORIDE
     Dates: start: 20200506
  2. PROPOFOL. [Concomitant]
     Active Substance: PROPOFOL
     Dates: start: 20200504, end: 20200508
  3. PIPERACILLIN AND TAZOBACTAM [Concomitant]
     Active Substance: PIPERACILLIN SODIUM\TAZOBACTAM SODIUM
     Dates: start: 20200502, end: 20200506
  4. ENOXAPARIN [Concomitant]
     Active Substance: ENOXAPARIN
     Dates: start: 20200504, end: 20200508
  5. REMDESIVIR. [Suspect]
     Active Substance: REMDESIVIR
     Indication: COVID-19
     Dates: start: 20200507, end: 20200508
  6. FENTANYL. [Concomitant]
     Active Substance: FENTANYL
     Dates: start: 20200502
  7. PANTOPRAZOLE [Concomitant]
     Active Substance: PANTOPRAZOLE
     Dates: start: 20200503, end: 20200512

REACTIONS (6)
  - White blood cell count increased [None]
  - Blood creatinine increased [None]
  - Oxygen consumption increased [None]
  - Product use in unapproved indication [None]
  - Clinical trial participant [None]
  - Chest X-ray abnormal [None]

NARRATIVE: CASE EVENT DATE: 20200508
